FAERS Safety Report 6227636-X (Version None)
Quarter: 2009Q2

REPORT INFORMATION
  Report Type: 
  Country: None (occurrence: None)
  Receive Date: 20090612
  Receipt Date: 20090601
  Transmission Date: 20091009
  Serious: Yes (Death, Other)
  Sender: FDA-Public Use
  Company Number: US-BIOGENIDEC-2009BI016486

PATIENT
  Age: 55 Year
  Sex: Female

DRUGS (3)
  1. AVONEX [Suspect]
     Indication: DRUG USE FOR UNKNOWN INDICATION
     Route: 030
  2. PROZAC [Concomitant]
     Indication: BIPOLAR DISORDER
  3. TRAZODONE HCL [Concomitant]
     Indication: SLEEP DISORDER

REACTIONS (3)
  - ACCIDENTAL OVERDOSE [None]
  - ANGINA PECTORIS [None]
  - CARDIAC ARREST [None]
